FAERS Safety Report 5701432-1 (Version None)
Quarter: 2008Q2

REPORT INFORMATION
  Report Type: 
  Country: None (occurrence: None)
  Receive Date: 20080410
  Receipt Date: 20080401
  Transmission Date: 20081010
  Serious: Yes (Disabling, Other)
  Sender: FDA-Public Use
  Company Number: US-MERCK-0803USA01932

PATIENT
  Age: 78 Year
  Sex: Female
  Weight: 57 kg

DRUGS (18)
  1. ZOCOR [Suspect]
     Indication: BLOOD CHOLESTEROL INCREASED
     Route: 048
     Dates: start: 20050101, end: 20080307
  2. PREVACID [Concomitant]
     Route: 065
  3. PLAVIX [Concomitant]
     Route: 065
  4. ASPIRIN [Concomitant]
     Route: 065
  5. VERAPAMIL [Concomitant]
     Route: 065
  6. CLONIDINE [Concomitant]
     Route: 065
  7. MICARDIS [Concomitant]
     Route: 065
  8. CENTRUM [Concomitant]
     Route: 065
  9. CITRACAL CAPLETS + D [Concomitant]
     Route: 065
  10. FEXOFENADINE HYDROCHLORIDE [Concomitant]
     Route: 065
  11. GASTROINTESTINAL PREPARATIONS (UNSPECIFIED) [Concomitant]
     Indication: ABNORMAL FAECES
     Route: 065
  12. [THERAPY UNSPECIFIED] [Concomitant]
     Route: 065
  13. AMOXICILLIN [Concomitant]
     Route: 065
  14. ACTONEL [Concomitant]
     Route: 065
  15. MECLIZINE [Concomitant]
     Route: 065
  16. MECLIZINE [Concomitant]
     Route: 065
  17. SPIRONOLACTONE [Concomitant]
     Route: 065
  18. ACIDOPHILUS [Concomitant]
     Route: 065

REACTIONS (6)
  - CARDIAC DISORDER [None]
  - DYSPEPSIA [None]
  - MUSCULOSKELETAL PAIN [None]
  - MYALGIA [None]
  - NECK PAIN [None]
  - OEDEMA PERIPHERAL [None]
